FAERS Safety Report 9054792 (Version 1)
Quarter: 2013Q1

REPORT INFORMATION
  Report Type: Spontaneous
  Country: US (occurrence: US)
  Receive Date: 20130208
  Receipt Date: 20130208
  Transmission Date: 20140127
  Serious: Yes (Other)
  Sender: FDA-Public Use
  Company Number: US-JNJCP-30000145288

PATIENT
  Sex: Female

DRUGS (1)
  1. NTG ULTRA SHEER SUNBLOCK LOTION SPF55 [Suspect]
     Indication: PROPHYLAXIS
     Route: 061

REACTIONS (2)
  - Application site rash [Unknown]
  - Application site necrosis [Unknown]
